FAERS Safety Report 10096044 (Version 1)
Quarter: 2014Q2

REPORT INFORMATION
  Report Type: Spontaneous
  Country: GB (occurrence: GB)
  Receive Date: 20140422
  Receipt Date: 20140422
  Transmission Date: 20141212
  Serious: Yes (Other)
  Sender: FDA-Public Use
  Company Number: GB-GLAXOSMITHKLINE-B0986490A

PATIENT
  Age: 18 Year
  Sex: Female
  Weight: 72 kg

DRUGS (9)
  1. ONDANSETRON [Suspect]
     Indication: VOMITING
     Route: 042
     Dates: start: 20140404, end: 20140404
  2. AZATHIOPRINE [Concomitant]
  3. PROPOFOL [Concomitant]
     Indication: SURGERY
     Dates: start: 20140404, end: 20140404
  4. INFLIXIMAB [Concomitant]
  5. OMEPRAZOL [Concomitant]
  6. FENTANYL [Concomitant]
     Indication: SURGERY
     Dates: start: 20140404, end: 20140404
  7. ROCURONIUM [Concomitant]
     Indication: SURGERY
     Dates: start: 20140404, end: 20140404
  8. NEOSTIGMINE [Concomitant]
     Indication: SURGERY
     Dates: start: 20140404, end: 20140404
  9. DEXAMETHASONE [Concomitant]
     Indication: SURGERY
     Dates: start: 20140404, end: 20140404

REACTIONS (3)
  - Oculogyric crisis [Recovered/Resolved]
  - Loss of consciousness [Recovered/Resolved]
  - Dystonia [Recovered/Resolved]
